FAERS Safety Report 8581185-2 (Version None)
Quarter: 2012Q3

REPORT INFORMATION
  Report Type: 
  Country: None (occurrence: None)
  Receive Date: 20120809
  Receipt Date: 20120730
  Transmission Date: 20120928
  Serious: Yes (Hospitalization)
  Sender: FDA-Public Use
  Company Number: US-BAYER-2012-045395

PATIENT
  Age: 41 Year
  Sex: Female
  Weight: 78.458 kg

DRUGS (23)
  1. FENTANYL [Concomitant]
     Dosage: 50 ?G, UNK
     Route: 042
     Dates: start: 20100301
  2. METRONIDAZOLE [Concomitant]
     Dosage: 500 MG; 30 DISPENSED
  3. VERSED [Concomitant]
     Dosage: 3 MG, PRN
     Route: 042
     Dates: start: 20100301
  4. PEPCID [Concomitant]
     Dosage: 20 MG, UNK
     Route: 042
     Dates: start: 20100301
  5. TORADOL [Concomitant]
     Indication: ABDOMINAL PAIN
     Dosage: UNK
     Route: 042
     Dates: start: 20100429
  6. ZOFRAN [Concomitant]
     Indication: NAUSEA
     Route: 042
  7. ADVIL [Concomitant]
  8. AUGMENTIN '500' [Concomitant]
  9. ATIVAN [Concomitant]
     Dosage: TOTAL 2 MG
     Route: 042
     Dates: start: 20100301
  10. DEMEROL [Concomitant]
     Dosage: TOTAL 25 MG
     Route: 042
     Dates: start: 20100301
  11. NORCO [Concomitant]
     Indication: ABDOMINAL PAIN
     Dosage: 5-325 MG; TOTAL 50 DISPENSED; EVERY 4 TO 6 HOURS AS NEEDED
  12. MORPHINE [Concomitant]
     Dosage: PCA
     Dates: start: 20100301
  13. AMBIEN [Concomitant]
     Dosage: 5 MG, UNK
  14. DICYCLOMINE [Concomitant]
     Dosage: 20 MG; 12 DISPENSED
  15. ZOFRAN [Concomitant]
     Indication: ABDOMINAL PAIN
  16. NAPROXEN [Concomitant]
     Dosage: UNK
     Dates: start: 20100401
  17. DOXYCYCLINE HCL [Concomitant]
     Indication: ROSACEA
  18. YAZ [Suspect]
     Indication: ACNE
     Dosage: UNK
     Dates: start: 20090301, end: 20091001
  19. IBUPROFEN [Concomitant]
  20. KAPIDEX [Concomitant]
     Dosage: 60 MG, UNK
  21. PROPOFOL [Concomitant]
     Indication: ANAESTHESIA
     Dosage: UNK
     Dates: start: 20100312
  22. DILAUDID [Concomitant]
     Indication: NAUSEA
     Dosage: UNK
     Route: 042
     Dates: start: 20100412
  23. DILAUDID [Concomitant]
     Indication: ABDOMINAL PAIN

REACTIONS (4)
  - GALLBLADDER INJURY [None]
  - BILIARY DYSKINESIA [None]
  - PAIN [None]
  - INJURY [None]
